FAERS Safety Report 5076332-3 (Version None)
Quarter: 2006Q3

REPORT INFORMATION
  Report Type: 
  Country: None (occurrence: None)
  Receive Date: 20060725
  Receipt Date: 20060511
  Transmission Date: 20061208
  Serious: No
  Sender: FDA-Public Use
  Company Number: 200613552BWH

PATIENT
  Age: 63 Year
  Sex: Female

DRUGS (3)
  1. NEXAVAR [Suspect]
     Indication: MALIGNANT MELANOMA
     Dosage: 400 MG, BID, ORAL
     Route: 048
     Dates: start: 20060509
  2. TAXOL [Suspect]
     Dates: start: 20060501
  3. CARBOPLATIN [Suspect]
     Dates: start: 20060501

REACTIONS (2)
  - ERYTHEMA [None]
  - RASH [None]
